FAERS Safety Report 4630554-1 (Version None)
Quarter: 2005Q2

REPORT INFORMATION
  Report Type: 
  Country: None (occurrence: None)
  Receive Date: 20050408
  Receipt Date: 20050329
  Transmission Date: 20051028
  Serious: Yes (Other)
  Sender: FDA-Public Use
  Company Number: FR-GLAXOSMITHKLINE-B0376931A

PATIENT
  Age: 70 Year
  Sex: Female

DRUGS (2)
  1. LAMICTAL [Suspect]
     Indication: EPILEPSY
     Dosage: 100MG TWICE PER DAY
     Route: 048
     Dates: start: 20011001
  2. PROPRANOLOL [Concomitant]
     Indication: TREMOR
     Dosage: 20MG TWICE PER DAY
     Route: 048

REACTIONS (3)
  - EPILEPSY [None]
  - ORAL LICHEN PLANUS [None]
  - RASH [None]
